FAERS Safety Report 5609688-0 (Version None)
Quarter: 2008Q1

REPORT INFORMATION
  Report Type: 
  Country: None (occurrence: None)
  Receive Date: 20080131
  Receipt Date: 20070531
  Transmission Date: 20080703
  Serious: No
  Sender: FDA-Public Use
  Company Number: US-BAYER-200711755BCC

PATIENT
  Age: 65 Year
  Sex: Male
  Weight: 104 kg

DRUGS (7)
  1. ALEVE COLD AND SINUS [Suspect]
     Indication: NASOPHARYNGITIS
     Dosage: TOTAL DAILY DOSE: 220 MG  UNIT DOSE: 220 MG
     Route: 048
     Dates: start: 20070529
  2. ALEVE COLD AND SINUS [Suspect]
     Dosage: TOTAL DAILY DOSE: 440 MG  UNIT DOSE: 220 MG
     Route: 048
     Dates: start: 20070530
  3. UNKNOWN MULTIVITAMIN [Concomitant]
  4. I CAPS [Concomitant]
  5. ST.JOSEPH'S BABY ASPIRIN [Concomitant]
  6. HIGH CHOLESTEROL MEDICATION [Concomitant]
  7. HIGH BLOOD PRESSURE MEDICATION [Concomitant]

REACTIONS (1)
  - SLEEP DISORDER [None]
